FAERS Safety Report 8237114-4 (Version None)
Quarter: 2012Q1

REPORT INFORMATION
  Report Type: 
  Country: None (occurrence: None)
  Receive Date: 20120327
  Receipt Date: 20120321
  Transmission Date: 20120608
  Serious: Yes (Death)
  Sender: FDA-Public Use
  Company Number: JP-SANOFI-AVENTIS-2012SA014829

PATIENT
  Age: 83 Year
  Sex: Male
  Weight: 65 kg

DRUGS (1)
  1. PLAVIX [Suspect]
     Dosage: FORM : INTERNAL USE
     Route: 048
     Dates: start: 20100101, end: 20120201

REACTIONS (1)
  - INTERSTITIAL LUNG DISEASE [None]
